FAERS Safety Report 6078643-1 (Version None)
Quarter: 2009Q1

REPORT INFORMATION
  Report Type: 
  Country: None (occurrence: None)
  Receive Date: 20090216
  Receipt Date: 20090202
  Transmission Date: 20090719
  Serious: Yes (Hospitalization, Other)
  Sender: FDA-Public Use
  Company Number: BR-RANBAXY-2009R5-21653

PATIENT

DRUGS (8)
  1. GABAPENTIN [Suspect]
     Indication: HERPES ZOSTER
     Dosage: 400 MG, UNK
     Route: 048
  2. ARADOIS [Concomitant]
  3. LOSARTAN POTASSIUM [Concomitant]
  4. PRESSAT [Concomitant]
  5. NOVONOME [Concomitant]
  6. DOXAZOSIN MESYLATE [Concomitant]
  7. FINASTERIDE [Concomitant]
  8. MACRODANTINA [Concomitant]

REACTIONS (1)
  - CONVULSION [None]
